FAERS Safety Report 5942112-7 (Version None)
Quarter: 2008Q4

REPORT INFORMATION
  Report Type: 
  Country: None (occurrence: None)
  Receive Date: 20081104
  Receipt Date: 20081104
  Transmission Date: 20090506
  Serious: No
  Sender: FDA-Public Use
  Company Number: None

PATIENT
  Age: 88 Year
  Sex: Male
  Weight: 99.79 kg

DRUGS (2)
  1. WARFARIN SODIUM [Suspect]
     Indication: ATRIAL FIBRILLATION
     Dosage: 7.5 MG EVERY DAY PO
     Route: 048
     Dates: start: 20080102, end: 20080819
  2. PHENYTOIN [Suspect]
     Indication: CONVULSION
     Dosage: 100 MG QID SQ
     Route: 058
     Dates: start: 20080102, end: 20080919

REACTIONS (4)
  - BRAIN HERNIATION [None]
  - DRUG LEVEL INCREASED [None]
  - FALL [None]
  - SUBDURAL HAEMATOMA [None]
